FAERS Safety Report 12417623 (Version 2)
Quarter: 2016Q2

REPORT INFORMATION
  Report Type: Spontaneous
  Country: US (occurrence: US)
  Receive Date: 20160530
  Receipt Date: 20160607
  Transmission Date: 20160815
  Serious: Yes (Other)
  Sender: FDA-Public Use
  Company Number: PHEH2016US012729

PATIENT
  Sex: Male

DRUGS (2)
  1. RITALIN [Suspect]
     Active Substance: METHYLPHENIDATE HYDROCHLORIDE
     Indication: PRODUCT USED FOR UNKNOWN INDICATION
     Dosage: UNK
     Route: 048
  2. ADDERALL [Suspect]
     Active Substance: AMPHETAMINE ASPARTATE\AMPHETAMINE SULFATE\DEXTROAMPHETAMINE SACCHARATE\DEXTROAMPHETAMINE SULFATE
     Indication: PRODUCT USED FOR UNKNOWN INDICATION
     Route: 048

REACTIONS (14)
  - Seizure [Unknown]
  - Arrhythmia [Unknown]
  - Hypoaesthesia [Unknown]
  - Tremor [Unknown]
  - Feeling abnormal [Unknown]
  - General physical health deterioration [Unknown]
  - Cerebrovascular accident [Unknown]
  - Palpitations [Unknown]
  - Suicidal ideation [Unknown]
  - Feeling of despair [Unknown]
  - Fear [Unknown]
  - Sedation [Unknown]
  - Tooth loss [Unknown]
  - Emotional distress [Unknown]
